FAERS Safety Report 20169242 (Version 2)
Quarter: 2022Q1

REPORT INFORMATION
  Report Type: Spontaneous
  Country: US (occurrence: US)
  Receive Date: 20211210
  Receipt Date: 20220120
  Transmission Date: 20220423
  Serious: No
  Sender: FDA-Public Use
  Company Number: US-BAYER-2021A264801

PATIENT
  Age: 32 Year
  Sex: Female
  Weight: 146 kg

DRUGS (4)
  1. MIRENA [Suspect]
     Active Substance: LEVONORGESTREL
     Indication: Contraception
     Dosage: 20?G/DAY
     Route: 015
     Dates: start: 20190722, end: 20210427
  2. PIROXICAM [Concomitant]
     Active Substance: PIROXICAM
     Indication: Antidepressant therapy
     Dosage: UNK
     Dates: start: 20190722
  3. PREDNISONE [Concomitant]
     Active Substance: PREDNISONE
     Dosage: UNK
     Dates: start: 20210427
  4. CEFTRIAXONE [Concomitant]
     Active Substance: CEFTRIAXONE
     Dosage: UNK
     Dates: start: 20210427

REACTIONS (5)
  - Abdominal pain [Not Recovered/Not Resolved]
  - Pelvic pain [Unknown]
  - Colitis [Unknown]
  - Urinary tract infection [Unknown]
  - Dyspareunia [None]
